FAERS Safety Report 21579715 (Version 1)
Quarter: 2022Q4

REPORT INFORMATION
  Report Type: Spontaneous
  Country: US (occurrence: None)
  Receive Date: 20221110
  Receipt Date: 20221110
  Transmission Date: 20230113
  Serious: No
  Sender: FDA-Public Use
  Company Number: None

PATIENT
  Age: 68 Year
  Sex: Female
  Weight: 83.01 kg

DRUGS (1)
  1. CARVEDILOL [Suspect]
     Active Substance: CARVEDILOL
     Indication: Hypertension
     Dosage: FREQUENCY : TWICE A DAY;?
     Route: 048
     Dates: start: 20220927, end: 20221021

REACTIONS (7)
  - Dizziness [None]
  - Nausea [None]
  - Headache [None]
  - Anxiety [None]
  - Palpitations [None]
  - Drug hypersensitivity [None]
  - Withdrawal syndrome [None]
